FAERS Safety Report 7828365-9 (Version None)
Quarter: 2011Q4

REPORT INFORMATION
  Report Type: 
  Country: None (occurrence: None)
  Receive Date: 20111020
  Receipt Date: 20111018
  Transmission Date: 20120403
  Serious: No
  Sender: FDA-Public Use
  Company Number: US-PFIZER INC-2011166996

PATIENT
  Sex: Female

DRUGS (9)
  1. FOSAMAX [Concomitant]
     Dosage: 70 MG, CYCLIC: WEEKLY
  2. LEVOTHROID [Concomitant]
     Dosage: 150 UG, UNK
  3. CALCIUM [Concomitant]
     Dosage: 500 TAB
  4. VITAMIN B-12 [Concomitant]
     Dosage: 1000 UG, UNK
  5. SUTENT [Suspect]
     Indication: CARCINOID SYNDROME
     Dosage: 25 MG, 1X/DAY
     Route: 048
     Dates: start: 20110623
  6. VITAMIN B COMPLEX CAP [Concomitant]
     Dosage: UNK
  7. SANDOSTATIN LAR [Concomitant]
     Dosage: 30 MG, MONTHLY
  8. SPIRONOLACTONE [Concomitant]
     Dosage: 25 MG, UNK
  9. OCTREOTIDE [Concomitant]
     Dosage: 200 UG, UNK

REACTIONS (4)
  - PETECHIAE [None]
  - WHITE BLOOD CELL COUNT DECREASED [None]
  - PRURITUS [None]
  - EYE PRURITUS [None]
